FAERS Safety Report 5250941-0 (Version None)
Quarter: 2007Q1

REPORT INFORMATION
  Report Type: 
  Country: None (occurrence: None)
  Receive Date: 20070228
  Receipt Date: 20060731
  Transmission Date: 20070707
  Serious: No
  Sender: FDA-Public Use
  Company Number: US-GLAXOSMITHKLINE-A0614159A

PATIENT
  Age: 45 Year
  Sex: Female

DRUGS (5)
  1. LAMICTAL [Suspect]
     Indication: DRUG USE FOR UNKNOWN INDICATION
     Dosage: 20MG PER DAY
     Route: 048
     Dates: start: 20060713, end: 20060719
  2. CATAPRES [Concomitant]
  3. DIOVAN [Concomitant]
  4. NORVASC [Concomitant]
  5. LOPRESSOR [Concomitant]

REACTIONS (3)
  - INSOMNIA [None]
  - PRURITUS [None]
  - RASH [None]
